FAERS Safety Report 13569712 (Version 1)
Quarter: 2017Q2

REPORT INFORMATION
  Report Type: Spontaneous
  Country: BR (occurrence: BR)
  Receive Date: 20170522
  Receipt Date: 20170522
  Transmission Date: 20170830
  Serious: Yes (Other)
  Sender: FDA-Public Use
  Company Number: BR-BAYER-2017-093016

PATIENT
  Age: 29 Year
  Sex: Female

DRUGS (2)
  1. AZELAN [Suspect]
     Active Substance: AZELAIC ACID
     Indication: SKIN DISORDER
  2. AZELAN [Suspect]
     Active Substance: AZELAIC ACID
     Indication: SKIN DISCOLOURATION
     Dosage: UNK UNK, QD
     Route: 061
     Dates: start: 201704

REACTIONS (4)
  - Heart rate increased [Recovered/Resolved]
  - Arrhythmia [Recovered/Resolved]
  - Application site pruritus [None]
  - Product use issue [None]

NARRATIVE: CASE EVENT DATE: 201704
